FAERS Safety Report 9134483 (Version 3)
Quarter: 2013Q2

REPORT INFORMATION
  Report Type: Spontaneous
  Country: IT (occurrence: IT)
  Receive Date: 20130304
  Receipt Date: 20130527
  Transmission Date: 20140414
  Serious: Yes (Other)
  Sender: FDA-Public Use
  Company Number: IT-BRISTOL-MYERS SQUIBB COMPANY-17406745

PATIENT
  Age: 85 Year
  Sex: Female

DRUGS (6)
  1. COUMADIN TABS 5 MG [Suspect]
     Dates: start: 20120101, end: 20130219
  2. FUROSEMIDE [Concomitant]
  3. SIMVASTATIN [Concomitant]
  4. ZOLOFT [Concomitant]
  5. SINEMET [Concomitant]
     Dosage: 1 DF: 100+25MG TABS
     Route: 048
  6. NAPRILENE [Concomitant]
     Dosage: TAB
     Route: 048

REACTIONS (2)
  - Ischaemic stroke [Unknown]
  - Overdose [Unknown]
